FAERS Safety Report 18977749 (Version 9)
Quarter: 2021Q4

REPORT INFORMATION
  Report Type: Report from Study
  Country: US (occurrence: US)
  Receive Date: 20210306
  Receipt Date: 20211105
  Transmission Date: 20220303
  Serious: Yes (Other)
  Sender: FDA-Public Use
  Company Number: US-NOVARTISPH-NVSC2021US052284

PATIENT
  Age: 72 Year
  Sex: Female

DRUGS (3)
  1. ENTRESTO [Suspect]
     Active Substance: SACUBITRIL\VALSARTAN
     Indication: Product used for unknown indication
     Dosage: UNK UNK, BID
     Route: 048
     Dates: start: 20210225
  2. ENTRESTO [Suspect]
     Active Substance: SACUBITRIL\VALSARTAN
     Dosage: UNK(DOUBLED DOSE)
     Route: 065
  3. LASIX [Concomitant]
     Active Substance: FUROSEMIDE
     Indication: Product used for unknown indication
     Dosage: UNK
     Route: 065

REACTIONS (13)
  - Atrial fibrillation [Unknown]
  - Joint swelling [Recovering/Resolving]
  - Peripheral swelling [Not Recovered/Not Resolved]
  - Blood pressure increased [Recovering/Resolving]
  - Limb injury [Unknown]
  - Malaise [Unknown]
  - Fatigue [Unknown]
  - Arthropathy [Unknown]
  - Temperature intolerance [Unknown]
  - Heart rate increased [Unknown]
  - Drug ineffective [Unknown]
  - Therapeutic product effect increased [Unknown]
  - Throat clearing [Unknown]

NARRATIVE: CASE EVENT DATE: 20210912
